FAERS Safety Report 16113151 (Version 1)
Quarter: 2019Q1

REPORT INFORMATION
  Report Type: Spontaneous
  Country: JP (occurrence: JP)
  Receive Date: 20190325
  Receipt Date: 20190325
  Transmission Date: 20190418
  Serious: Yes (Other)
  Sender: FDA-Public Use
  Company Number: JP-PFIZER INC-2019122608

PATIENT

DRUGS (2)
  1. ARTZ [Concomitant]
     Active Substance: HYALURONATE SODIUM
     Dosage: UNK
  2. CELECOX [Suspect]
     Active Substance: CELECOXIB
     Indication: OSTEOARTHRITIS
     Dosage: 100 MG, 2X/DAY
     Route: 048

REACTIONS (1)
  - Oculomucocutaneous syndrome [Unknown]
